FAERS Safety Report 16017372 (Version 5)
Quarter: 2019Q3

REPORT INFORMATION
  Report Type: Spontaneous
  Country: US (occurrence: US)
  Receive Date: 20190228
  Receipt Date: 20190701
  Transmission Date: 20191004
  Serious: Yes (Hospitalization, Other)
  Sender: FDA-Public Use
  Company Number: US-HBP-2019US018418

PATIENT
  Sex: Female

DRUGS (9)
  1. MULTIVITAMINS                      /00116001/ [Concomitant]
     Active Substance: VITAMINS
  2. VITAMIN D                          /00107901/ [Concomitant]
     Active Substance: ERGOCALCIFEROL
  3. VALCHLOR [Suspect]
     Active Substance: MECHLORETHAMINE
     Indication: CUTANEOUS T-CELL LYMPHOMA
     Dosage: UNK, ONCE A DAY AT NIGHT
     Route: 061
     Dates: start: 20190123, end: 201904
  4. SYNTHROID [Concomitant]
     Active Substance: LEVOTHYROXINE SODIUM
  5. IRON [Concomitant]
     Active Substance: IRON
  6. PROBIOTIC                          /06395501/ [Concomitant]
     Active Substance: BIFIDOBACTERIUM ANIMALIS LACTIS
  7. SOTALOL. [Suspect]
     Active Substance: SOTALOL
     Indication: CARDIAC DISORDER
     Dosage: 80 MILLIGRAM, BID
  8. SOTALOL. [Suspect]
     Active Substance: SOTALOL
     Dosage: 120 MILLIGRAM, BID
  9. PRADAXA [Concomitant]
     Active Substance: DABIGATRAN ETEXILATE MESYLATE

REACTIONS (10)
  - Blister [Recovering/Resolving]
  - Skin burning sensation [Unknown]
  - Rash [Not Recovered/Not Resolved]
  - Intentional dose omission [Unknown]
  - Pruritus [Not Recovered/Not Resolved]
  - Erythema [Recovering/Resolving]
  - Disease progression [Recovering/Resolving]
  - Condition aggravated [Recovering/Resolving]
  - Pneumonia [Unknown]
  - Neoplasm malignant [Not Recovered/Not Resolved]
